FAERS Safety Report 18906701 (Version 2)
Quarter: 2021Q1

REPORT INFORMATION
  Report Type: Spontaneous
  Country: US (occurrence: US)
  Receive Date: 20210217
  Receipt Date: 20210329
  Transmission Date: 20210420
  Serious: No
  Sender: FDA-Public Use
  Company Number: US-PFIZER INC-2021138651

PATIENT
  Age: 44 Year
  Sex: Female

DRUGS (1)
  1. XELJANZ XR [Suspect]
     Active Substance: TOFACITINIB CITRATE
     Dosage: 11 MG, UNK
     Dates: start: 202012

REACTIONS (5)
  - Condition aggravated [Unknown]
  - Abdominal pain upper [Unknown]
  - Chest pain [Unknown]
  - Tooth infection [Recovered/Resolved]
  - Dyspepsia [Unknown]
